FAERS Safety Report 9652006 (Version 2)
Quarter: 2013Q4

REPORT INFORMATION
  Report Type: Spontaneous
  Country: CA (occurrence: CA)
  Receive Date: 20131029
  Receipt Date: 20131029
  Transmission Date: 20140711
  Serious: Yes (Other)
  Sender: FDA-Public Use
  Company Number: CA-ROCHE-1039828

PATIENT
  Age: 52 Year
  Sex: Male
  Weight: 69.5 kg

DRUGS (2)
  1. PEGASYS [Suspect]
     Indication: HEPATITIS C
     Route: 058
     Dates: start: 20110901, end: 20120201
  2. RIBAVIRIN [Suspect]
     Indication: HEPATITIS C
     Route: 048
     Dates: start: 20110901, end: 20120201

REACTIONS (8)
  - Optic ischaemic neuropathy [Not Recovered/Not Resolved]
  - Road traffic accident [Unknown]
  - Headache [Unknown]
  - Joint injury [Unknown]
  - Musculoskeletal stiffness [Unknown]
  - Optic ischaemic neuropathy [Unknown]
  - Musculoskeletal stiffness [Unknown]
  - Joint injury [Unknown]
